FAERS Safety Report 10642930 (Version 1)
Quarter: 2014Q4

REPORT INFORMATION
  Report Type: Spontaneous
  Country: US (occurrence: None)
  Receive Date: 20141209
  Receipt Date: 20141209
  Transmission Date: 20150529
  Serious: Yes (Hospitalization, Disabling)
  Sender: FDA-Public Use
  Company Number: None

PATIENT
  Age: 66 Year
  Sex: Female
  Weight: 108.86 kg

DRUGS (2)
  1. ABILIFY [Suspect]
     Active Substance: ARIPIPRAZOLE
     Indication: DEPRESSION
     Dosage: 1 TABLET
     Route: 048
  2. AVELOX [Suspect]
     Active Substance: MOXIFLOXACIN HYDROCHLORIDE
     Indication: CELLULITIS

REACTIONS (4)
  - Blood glucose increased [None]
  - Blood pressure increased [None]
  - Tendonitis [None]
  - Stevens-Johnson syndrome [None]

NARRATIVE: CASE EVENT DATE: 20140601
